FAERS Safety Report 12560986 (Version 2)
Quarter: 2016Q3

REPORT INFORMATION
  Report Type: Report from Study
  Country: US (occurrence: US)
  Receive Date: 20160715
  Receipt Date: 20160715
  Transmission Date: 20161109
  Serious: Yes (Other)
  Sender: FDA-Public Use
  Company Number: US-TEVA-674894ACC

PATIENT
  Age: 30 Year
  Sex: Female

DRUGS (1)
  1. PARAGARD T 380A [Suspect]
     Active Substance: COPPER
     Route: 065

REACTIONS (6)
  - Alopecia [Unknown]
  - Pain [Unknown]
  - Weight increased [Unknown]
  - Mood swings [Unknown]
  - Metal poisoning [Unknown]
  - Menorrhagia [Unknown]
